FAERS Safety Report 15412296 (Version 1)
Quarter: 2018Q3

REPORT INFORMATION
  Report Type: Spontaneous
  Country: GB (occurrence: GB)
  Receive Date: 20180921
  Receipt Date: 20180921
  Transmission Date: 20181010
  Serious: Yes (Life-Threatening, Hospitalization, Other)
  Sender: FDA-Public Use
  Company Number: GB-ALKEM LABORATORIES LIMITED-GB-ALKEM-2018-07520

PATIENT
  Age: 11 Year
  Sex: Female

DRUGS (3)
  1. LAMOTRIGINE. [Suspect]
     Active Substance: LAMOTRIGINE
     Indication: SEIZURE
     Dosage: 0.7 MG/KG, UNK
     Route: 065
  2. SODIUM VALPROATE [Suspect]
     Active Substance: VALPROATE SODIUM
     Indication: SEIZURE
     Dosage: 300 MG, BID
     Route: 065
  3. SODIUM VALPROATE [Suspect]
     Active Substance: VALPROATE SODIUM
     Dosage: 200 MG, UNK
     Route: 065

REACTIONS (8)
  - Multiple organ dysfunction syndrome [Recovered/Resolved]
  - Rash [Recovered/Resolved]
  - Hypotension [Recovered/Resolved]
  - Renal failure [Recovered/Resolved]
  - Hypersensitivity [Recovered/Resolved]
  - Rhabdomyolysis [Unknown]
  - Pyrexia [Recovered/Resolved]
  - Disseminated intravascular coagulation [Recovered/Resolved]
